FAERS Safety Report 23952725 (Version 4)
Quarter: 2024Q4

REPORT INFORMATION
  Report Type: Report from Study
  Country: US (occurrence: US)
  Receive Date: 20240607
  Receipt Date: 20241011
  Transmission Date: 20250114
  Serious: Yes (Hospitalization, Other)
  Sender: JAZZ
  Company Number: US-JAZZ PHARMACEUTICALS-2024-US-004391

PATIENT
  Sex: Male

DRUGS (15)
  1. SODIUM OXYBATE [Suspect]
     Active Substance: SODIUM OXYBATE
     Indication: Narcolepsy
     Dosage: 4.5 GRAM, QD
  2. SODIUM OXYBATE [Suspect]
     Active Substance: SODIUM OXYBATE
     Indication: Cataplexy
     Dosage: 4.5 GRAM, BID
     Dates: start: 20240610, end: 20240616
  3. SODIUM OXYBATE [Suspect]
     Active Substance: SODIUM OXYBATE
     Indication: Somnolence
  4. TESTOSTERONE CYPIONATE [Concomitant]
     Active Substance: TESTOSTERONE CYPIONATE
     Indication: Hypogonadism
     Dosage: 200 MG/ML
     Dates: start: 20231001
  5. PATADAY [Concomitant]
     Active Substance: OLOPATADINE HYDROCHLORIDE
     Indication: Hypersensitivity
     Dosage: UNK
  6. ZINC [Concomitant]
     Active Substance: ZINC
     Indication: Dermatitis
     Dosage: UNK
  7. ROSUVASTATIN [Concomitant]
     Active Substance: ROSUVASTATIN
     Indication: Product used for unknown indication
     Dosage: UNK (40MG)
  8. ROSUVASTATIN [Concomitant]
     Active Substance: ROSUVASTATIN
     Dosage: UNK (10MG)
  9. LISINOPRIL [Concomitant]
     Active Substance: LISINOPRIL
     Indication: Product used for unknown indication
     Dosage: UNK
  10. OMEPRAZOLE [Concomitant]
     Active Substance: OMEPRAZOLE
     Indication: Product used for unknown indication
     Dosage: UNK
  11. TADALAFIL [Concomitant]
     Active Substance: TADALAFIL
     Indication: Product used for unknown indication
     Dosage: UNK
  12. LEXAPRO [Concomitant]
     Active Substance: ESCITALOPRAM OXALATE
     Indication: Product used for unknown indication
     Dosage: UNK
  13. HYDRALAZINE [Concomitant]
     Active Substance: HYDRALAZINE HYDROCHLORIDE
     Indication: Hypersensitivity
     Dosage: 25 MILLIGRAM, QD
  14. CETIRIZINE [Concomitant]
     Active Substance: CETIRIZINE HYDROCHLORIDE
     Indication: Hypersensitivity
     Dosage: UNK
  15. FLUTICASONE PROPIONATE [Concomitant]
     Active Substance: FLUTICASONE PROPIONATE
     Indication: Hypersensitivity
     Dosage: UNK

REACTIONS (23)
  - Acute kidney injury [Recovering/Resolving]
  - Depressed level of consciousness [Unknown]
  - Acute myocardial infarction [Unknown]
  - Autoimmune disorder [Unknown]
  - Hypoxia [Unknown]
  - Acute respiratory failure [Unknown]
  - Hyperkalaemia [Unknown]
  - Blood glucose increased [Unknown]
  - Diarrhoea [Unknown]
  - Somnambulism [Recovered/Resolved]
  - Onychomycosis [Unknown]
  - Malaise [Unknown]
  - Moaning [Unknown]
  - Normocytic anaemia [Unknown]
  - Cardiomegaly [Unknown]
  - Dyspnoea [Unknown]
  - Micturition urgency [Unknown]
  - Metabolic alkalosis [Unknown]
  - Oedema peripheral [Unknown]
  - Lipase increased [Unknown]
  - Sinus tachycardia [Unknown]
  - Palpitations [Unknown]
  - Hypertension [Unknown]
